FAERS Safety Report 19403209 (Version 1)
Quarter: 2021Q2

REPORT INFORMATION
  Report Type: Spontaneous
  Country: US (occurrence: US)
  Receive Date: 20210610
  Receipt Date: 20210610
  Transmission Date: 20210717
  Serious: Yes (Hospitalization)
  Sender: FDA-Public Use
  Company Number: None

PATIENT
  Sex: Female

DRUGS (2)
  1. BRAFTOVI [Concomitant]
     Active Substance: ENCORAFENIB
     Dates: start: 20200719
  2. MEKTOVI [Suspect]
     Active Substance: BINIMETINIB
     Indication: MALIGNANT MELANOMA
     Route: 048
     Dates: start: 20200719

REACTIONS (4)
  - Blood sodium decreased [None]
  - Renal impairment [None]
  - Muscle neoplasm [None]
  - Fatigue [None]
